FAERS Safety Report 6037566-4 (Version None)
Quarter: 2009Q1

REPORT INFORMATION
  Report Type: 
  Country: None (occurrence: None)
  Receive Date: 20090114
  Receipt Date: 20090106
  Transmission Date: 20090719
  Serious: Yes (Hospitalization)
  Sender: FDA-Public Use
  Company Number: US-ELI_LILLY_AND_COMPANY-US200901000582

PATIENT
  Age: 13 Year
  Sex: Male

DRUGS (5)
  1. CYMBALTA [Suspect]
     Indication: ASPERGER'S DISORDER
     Dosage: 90 MG, DAILY (1/D)
     Dates: start: 20080101
  2. SEROQUEL [Concomitant]
     Dates: start: 20080701
  3. GEODON [Concomitant]
  4. BENADRYL [Concomitant]
  5. VITAMIN B-12 [Concomitant]

REACTIONS (11)
  - BLOOD CHOLESTEROL INCREASED [None]
  - BLOOD GLUCOSE INCREASED [None]
  - BLOOD TRIGLYCERIDES INCREASED [None]
  - DIABETES MELLITUS [None]
  - FOOD CRAVING [None]
  - IMPULSIVE BEHAVIOUR [None]
  - POLYURIA [None]
  - SELF INJURIOUS BEHAVIOUR [None]
  - SLEEP DISORDER [None]
  - SUICIDAL IDEATION [None]
  - VOMITING [None]
